FAERS Safety Report 18102392 (Version 2)
Quarter: 2020Q3

REPORT INFORMATION
  Report Type: Report from Study
  Country: None (occurrence: US)
  Receive Date: 20200803
  Receipt Date: 20200921
  Transmission Date: 20201103
  Serious: Yes (Hospitalization, Other)
  Sender: FDA-Public Use
  Company Number: US-ABBVIE-20K-163-3506389-00

PATIENT
  Sex: Male

DRUGS (1)
  1. SKYRIZI [Suspect]
     Active Substance: RISANKIZUMAB-RZAA
     Indication: PSORIASIS
     Route: 058
     Dates: start: 20200402, end: 2020

REACTIONS (6)
  - Diverticulitis [Not Recovered/Not Resolved]
  - Stoma creation [Not Recovered/Not Resolved]
  - Intestinal perforation [Unknown]
  - Hernia [Not Recovered/Not Resolved]
  - Wound [Not Recovered/Not Resolved]
  - Sepsis [Unknown]

NARRATIVE: CASE EVENT DATE: 2020
